FAERS Safety Report 23046209 (Version 1)
Quarter: 2023Q4

REPORT INFORMATION
  Report Type: Spontaneous
  Country: US (occurrence: US)
  Receive Date: 20231009
  Receipt Date: 20231009
  Transmission Date: 20240109
  Serious: Yes (Other)
  Sender: FDA-Public Use
  Company Number: US-AMGEN-USASP2023175435

PATIENT

DRUGS (1)
  1. PROLIA [Suspect]
     Active Substance: DENOSUMAB
     Indication: Osteoporosis
     Dosage: UNK
     Route: 065
     Dates: start: 201603

REACTIONS (4)
  - Colitis microscopic [Unknown]
  - Cellulitis [Unknown]
  - Atrial fibrillation [Unknown]
  - Bone disorder [Unknown]

NARRATIVE: CASE EVENT DATE: 20160301
